FAERS Safety Report 8223966-0 (Version None)
Quarter: 2012Q1

REPORT INFORMATION
  Report Type: 
  Country: None (occurrence: None)
  Receive Date: 20120321
  Receipt Date: 20120307
  Transmission Date: 20120608
  Serious: Yes (Other)
  Sender: FDA-Public Use
  Company Number: DE-COVIDIEN/TYCO HEALTHCARE/MALLINCKRODT-T201201110

PATIENT

DRUGS (1)
  1. SODIUM IODIDE I 131 [Suspect]

REACTIONS (1)
  - MYELODYSPLASTIC SYNDROME [None]
